FAERS Safety Report 24136340 (Version 1)
Quarter: 2024Q3

REPORT INFORMATION
  Report Type: Spontaneous
  Country: US (occurrence: US)
  Receive Date: 20240725
  Receipt Date: 20240725
  Transmission Date: 20241017
  Serious: Yes (Other)
  Sender: AUROBINDO
  Company Number: US-AUROBINDO-AUR-APL-2024-036315

PATIENT
  Age: 38 Year
  Sex: Female

DRUGS (7)
  1. PREDNISONE [Suspect]
     Active Substance: PREDNISONE
     Indication: Nervous system disorder prophylaxis
     Dosage: UNK
     Route: 048
  2. PREGABALIN [Suspect]
     Active Substance: PREGABALIN
     Indication: Nervous system disorder prophylaxis
     Dosage: UNK
     Route: 065
  3. HYDROCORTISONE [Suspect]
     Active Substance: HYDROCORTISONE\HYDROCORTISONE ACETATE
     Indication: Nervous system disorder prophylaxis
     Dosage: 20 GRAM, 3 TIMES A DAY,TAPERED DOSE
     Route: 042
  4. CARBAMAZEPINE [Suspect]
     Active Substance: CARBAMAZEPINE
     Indication: Nervous system disorder prophylaxis
     Dosage: UNK
     Route: 065
  5. MEFLOQUINE [Suspect]
     Active Substance: MEFLOQUINE
     Indication: Plasmodium falciparum infection
     Dosage: 750 MILLIGRAM,(FIRST WEEK OF MAY)
     Route: 065
  6. BACLOFEN [Concomitant]
     Active Substance: BACLOFEN
     Indication: Nervous system disorder prophylaxis
     Dosage: UNK
     Route: 065
  7. BOTULINUM TOXIN TYPE A [Concomitant]
     Active Substance: BOTULINUM TOXIN TYPE A
     Indication: Nervous system disorder prophylaxis
     Dosage: UNK,EVERY 12 WEEK
     Route: 065

REACTIONS (1)
  - Drug ineffective [Unknown]
